FAERS Safety Report 9424452 (Version 1)
Quarter: 2013Q3

REPORT INFORMATION
  Report Type: Spontaneous
  Country: GB (occurrence: GB)
  Receive Date: 20130729
  Receipt Date: 20130729
  Transmission Date: 20140515
  Serious: Yes (Hospitalization)
  Sender: FDA-Public Use
  Company Number: GB-MYLANLABS-2013S1016043

PATIENT
  Age: 71 Year
  Sex: Female

DRUGS (9)
  1. OMEPRAZOLE [Suspect]
     Dosage: 20MG
     Route: 065
  2. ASPIRIN [Concomitant]
     Dosage: 75MG
     Route: 065
  3. BISOPROLOL [Concomitant]
     Dosage: 10MG
     Route: 065
  4. FLURAZEPAM [Concomitant]
     Dosage: 30MG
     Route: 065
  5. DOSULEPIN [Concomitant]
     Dosage: 150MG
     Route: 065
  6. DOXAZOSIN [Concomitant]
     Dosage: 4MG
     Route: 065
  7. RAMIPRIL [Concomitant]
     Dosage: 10MG
     Route: 065
  8. PRAVASTATIN [Concomitant]
     Dosage: 40MG
     Route: 065
  9. ROPINIROLE [Concomitant]
     Dosage: 250MCG
     Route: 065

REACTIONS (2)
  - Hypocalcaemia [Recovered/Resolved]
  - Hypomagnesaemia [Recovered/Resolved]
